FAERS Safety Report 16665865 (Version 1)
Quarter: 2019Q3

REPORT INFORMATION
  Report Type: Report from Study
  Country: None (occurrence: DE)
  Receive Date: 20190804
  Receipt Date: 20190804
  Transmission Date: 20191004
  Serious: Yes (Hospitalization)
  Sender: FDA-Public Use
  Company Number: DE-ABBVIE-19K-062-2874722-00

PATIENT
  Age: 67 Year
  Sex: Female

DRUGS (2)
  1. MTX [Suspect]
     Active Substance: METHOTREXATE SODIUM
     Indication: PRODUCT USED FOR UNKNOWN INDICATION
     Dosage: RANGE FROM 25 MG TO 2.5 MG
     Route: 065
  2. HUMIRA [Suspect]
     Active Substance: ADALIMUMAB
     Indication: RHEUMATOID ARTHRITIS
     Route: 058
     Dates: start: 201302, end: 201703

REACTIONS (2)
  - Contusion [Unknown]
  - Road traffic accident [Unknown]

NARRATIVE: CASE EVENT DATE: 20180611
